FAERS Safety Report 25735836 (Version 5)
Quarter: 2025Q4

REPORT INFORMATION
  Report Type: Spontaneous
  Country: AU (occurrence: AU)
  Receive Date: 20250828
  Receipt Date: 20251229
  Transmission Date: 20260118
  Serious: Yes (Hospitalization, Other)
  Sender: NOVARTIS
  Company Number: AU-ROCHE-10000311155

PATIENT
  Age: 15 Month
  Sex: Male
  Weight: 2.99 kg

DRUGS (33)
  1. AZATHIOPRINE [Suspect]
     Active Substance: AZATHIOPRINE
     Indication: Foetal exposure during pregnancy
     Dosage: MATERNAL EXPOSURE DURING PREGNANCY (2 MG/KG DAILY; ABSOLUTE DOSE: 150 MG DAILY)
     Route: 064
  2. AZATHIOPRINE [Suspect]
     Active Substance: AZATHIOPRINE
     Indication: Immunosuppressant drug therapy
  3. FLUCONAZOLE [Suspect]
     Active Substance: FLUCONAZOLE
     Indication: Foetal exposure during pregnancy
     Dosage: MATERNAL EXPOSURE DURING PREGNANCY (UNKNOWN DOSE)
     Route: 064
  4. FLUOXETINE HYDROCHLORIDE [Suspect]
     Active Substance: FLUOXETINE HYDROCHLORIDE
     Indication: Foetal exposure during pregnancy
     Dosage: MATERNAL EXPOSURE DURING PREGNANCY (UNKNOWN DOSE)
     Route: 064
  5. TACROLIMUS [Suspect]
     Active Substance: TACROLIMUS
     Indication: Foetal exposure during pregnancy
     Dosage: MATERNAL EXPOSURE DURING PREGNANCY (UNKNOWN DOSE)
     Route: 064
  6. TACROLIMUS [Suspect]
     Active Substance: TACROLIMUS
     Indication: Immunosuppressant drug therapy
  7. VALACYCLOVIR HYDROCHLORIDE [Suspect]
     Active Substance: VALACYCLOVIR HYDROCHLORIDE
     Indication: Foetal exposure during pregnancy
     Dosage: MATERNAL EXPOSURE DURING PREGNANCY (UNKNOWN DOSE)
     Route: 064
  8. VALACYCLOVIR HYDROCHLORIDE [Suspect]
     Active Substance: VALACYCLOVIR HYDROCHLORIDE
     Indication: Antiviral prophylaxis
  9. BASILIXIMAB [Suspect]
     Active Substance: BASILIXIMAB
     Indication: Foetal exposure during pregnancy
     Dosage: MATERNAL EXPOSURE DURING PREGNANCY (20 MG)
     Route: 064
  10. BASILIXIMAB [Suspect]
     Active Substance: BASILIXIMAB
     Indication: Immunosuppressant drug therapy
  11. CELLCEPT [Suspect]
     Active Substance: MYCOPHENOLATE MOFETIL
     Indication: Foetal exposure during pregnancy
     Dosage: MATERNAL EXPOSURE DURING PREGNANCY (1G)
     Route: 064
  12. CELLCEPT [Suspect]
     Active Substance: MYCOPHENOLATE MOFETIL
     Indication: Immunosuppressant drug therapy
     Dosage: MATERNAL EXPOSURE DURING PREGNANCY (750MG)
     Route: 064
  13. ENOXAPARIN SODIUM [Suspect]
     Active Substance: ENOXAPARIN SODIUM
     Indication: Foetal exposure during pregnancy
     Dosage: UNK
     Route: 064
  14. ENOXAPARIN SODIUM [Suspect]
     Active Substance: ENOXAPARIN SODIUM
     Indication: Prophylaxis
  15. METHYLPREDNISOLONE [Suspect]
     Active Substance: METHYLPREDNISOLONE
     Indication: Foetal exposure during pregnancy
     Dosage: MATERNAL EXPOSURE DURING PREGNANCY (500MG)
     Route: 064
     Dates: start: 20240702
  16. METHYLPREDNISOLONE [Suspect]
     Active Substance: METHYLPREDNISOLONE
     Indication: Immunosuppressant drug therapy
     Dosage: MATERNAL EXPOSURE DURING PREGNANCY (500MG)
     Route: 064
     Dates: start: 20240703
  17. METHYLPREDNISOLONE [Suspect]
     Active Substance: METHYLPREDNISOLONE
     Dosage: MATERNAL EXPOSURE DURING PREGNANCY (500MG)
     Route: 064
     Dates: start: 20240704
  18. NYSTATIN [Suspect]
     Active Substance: NYSTATIN
     Indication: Foetal exposure during pregnancy
     Dosage: MATERNAL EXPOSURE DURING PREGNANCY UNK
     Route: 064
  19. OXYTOCIN [Suspect]
     Active Substance: OXYTOCIN
     Indication: Foetal exposure during pregnancy
     Dosage: MATERNAL EXPOSURE DURING PREGNANCY (10 IU)
     Route: 064
  20. OXYTOCIN [Suspect]
     Active Substance: OXYTOCIN
     Dosage: MATERNAL EXPOSURE DURING PREGNANCY (40 IU)
     Route: 064
  21. PREDNISOLONE [Suspect]
     Active Substance: PREDNISOLONE
     Indication: Foetal exposure during pregnancy
     Dosage: MATERNAL EXPOSURE DURING PREGNANCY (UNK)
     Route: 064
  22. PREDNISOLONE [Suspect]
     Active Substance: PREDNISOLONE
     Indication: Immunosuppressant drug therapy
     Dosage: MATERNAL EXPOSURE DURING PREGNANCY UNK
     Route: 064
  23. PREDNISOLONE [Suspect]
     Active Substance: PREDNISOLONE
     Dosage: MATERNAL EXPOSURE DURING PREGNANCY (2MG))
     Route: 064
     Dates: end: 20250110
  24. SULFAMETHOXAZOLE AND TRIMETHOPRIM [Suspect]
     Active Substance: SULFAMETHOXAZOLE\TRIMETHOPRIM
     Indication: Foetal exposure during pregnancy
     Dosage: MATERNAL EXPOSURE DURING PREGNANCY UNK
     Route: 064
  25. TRANEXAMIC ACID [Suspect]
     Active Substance: TRANEXAMIC ACID
     Indication: Foetal exposure during pregnancy
     Dosage: MATERNAL EXPOSURE DURING PREGNANCY (1G)
     Route: 064
  26. TRANEXAMIC ACID [Suspect]
     Active Substance: TRANEXAMIC ACID
     Indication: Prophylaxis
  27. IRON [Suspect]
     Active Substance: IRON
     Indication: Mineral supplementation
     Dosage: MATERNAL EXPOSURE DURING PREGNANCY
     Route: 064
  28. IRON [Suspect]
     Active Substance: IRON
     Indication: Foetal exposure during pregnancy
  29. INSULIN NOS [Suspect]
     Active Substance: INSULIN NOS
     Indication: Gestational diabetes
     Dosage: MATERNAL EXPOSURE DURING PREGNANCY (26 INTERNATIONAL UNIT, INTERVAL 1 DAY)
     Route: 064
  30. INSULIN NOS [Suspect]
     Active Substance: INSULIN NOS
     Indication: Foetal exposure during pregnancy
     Dosage: MATERNAL EXPOSURE DURING PREGNANCY (SOLUTION FOR INJECTION, UNK)
     Route: 064
  31. DEXTROSE [Suspect]
     Active Substance: DEXTROSE MONOHYDRATE
     Indication: Glucose tolerance test
     Dosage: MATERNAL EXPOSURE DURING PREGNANCY
     Route: 064
  32. DEXTROSE [Suspect]
     Active Substance: DEXTROSE MONOHYDRATE
     Indication: Foetal exposure during pregnancy
  33. MYCOPHENOLATE MOFETIL [Suspect]
     Active Substance: MYCOPHENOLATE MOFETIL
     Indication: Foetal exposure during pregnancy
     Dosage: MATERNAL EXPOSURE DURING PREGNANCY
     Route: 064

REACTIONS (6)
  - Jaundice neonatal [Unknown]
  - Dyspnoea [Recovered/Resolved]
  - Neonatal respiratory distress [Unknown]
  - Premature baby [Unknown]
  - Neonatal dyspnoea [Recovered/Resolved]
  - Foetal exposure during pregnancy [Unknown]
